FAERS Safety Report 13428404 (Version 2)
Quarter: 2017Q2

REPORT INFORMATION
  Report Type: Spontaneous
  Country: BG (occurrence: BG)
  Receive Date: 20170411
  Receipt Date: 20170428
  Transmission Date: 20170830
  Serious: Yes (Other)
  Sender: FDA-Public Use
  Company Number: BG-BAYER-2017-062193

PATIENT
  Age: 46 Year
  Sex: Male

DRUGS (4)
  1. NEXAVAR [Suspect]
     Active Substance: SORAFENIB
     Indication: HEPATOCELLULAR CARCINOMA
     Dosage: UNK
     Dates: start: 201107, end: 201110
  2. EPIRUBICIN [Concomitant]
     Active Substance: EPIRUBICIN
     Indication: HEPATOCELLULAR CARCINOMA
     Dosage: 4 COURSES RECEIVED
     Dates: start: 201205, end: 201208
  3. NEXAVAR [Suspect]
     Active Substance: SORAFENIB
     Indication: HEPATOCELLULAR CARCINOMA
     Dosage: UNK
     Dates: start: 201310
  4. NEXAVAR [Suspect]
     Active Substance: SORAFENIB
     Indication: HEPATOCELLULAR CARCINOMA
     Dosage: UNK
     Dates: start: 201111, end: 201205

REACTIONS (10)
  - Alpha 1 foetoprotein increased [None]
  - Metastases to spine [None]
  - Metastases to lung [None]
  - Metastases to bone [None]
  - Thrombocytopenia [Recovered/Resolved]
  - Metastases to muscle [None]
  - Metastases to chest wall [None]
  - Fatigue [Not Recovered/Not Resolved]
  - Hepatocellular carcinoma [None]
  - Hepatocellular carcinoma [None]

NARRATIVE: CASE EVENT DATE: 201110
